FAERS Safety Report 20314646 (Version 1)
Quarter: 2022Q1

REPORT INFORMATION
  Report Type: Spontaneous
  Country: US (occurrence: US)
  Receive Date: 20220110
  Receipt Date: 20220110
  Transmission Date: 20220423
  Serious: Yes (Death, Hospitalization)
  Sender: FDA-Public Use
  Company Number: US-BAYER-2022A001879

PATIENT
  Age: 74 Year
  Sex: Male

DRUGS (8)
  1. ASPIRIN [Suspect]
     Active Substance: ASPIRIN
     Route: 048
  2. NITROGLYCERIN [Suspect]
     Active Substance: NITROGLYCERIN
  3. ALLOPURINOL [Suspect]
     Active Substance: ALLOPURINOL
  4. ATORVASTATIN [Suspect]
     Active Substance: ATORVASTATIN
  5. ACETAMINOPHEN [Suspect]
     Active Substance: ACETAMINOPHEN
  6. COLCHICINE [Suspect]
     Active Substance: COLCHICINE
  7. FUROSEMIDE [Suspect]
     Active Substance: FUROSEMIDE
  8. IBUPROFEN [Suspect]
     Active Substance: IBUPROFEN

REACTIONS (2)
  - Completed suicide [Fatal]
  - Toxicity to various agents [Fatal]
